FAERS Safety Report 8824279 (Version 1)
Quarter: 2012Q4

REPORT INFORMATION
  Report Type: 
  Country: US (occurrence: US)
  Receive Date: 20121004
  Receipt Date: 20121004
  Transmission Date: 20130627
  Serious: Yes (Other)
  Sender: FDA-Public Use
  Company Number: US-009507513-1210USA000081

PATIENT
  Sex: Female

DRUGS (1)
  1. IMPLANON [Suspect]
     Dosage: UNK
     Dates: start: 201209

REACTIONS (4)
  - Hypersensitivity [Unknown]
  - Implant site oedema [Unknown]
  - Implant site pruritus [Unknown]
  - Swelling face [Unknown]
